FAERS Safety Report 7134798-9 (Version None)
Quarter: 2010Q4

REPORT INFORMATION
  Report Type: 
  Country: None (occurrence: None)
  Receive Date: 20101203
  Receipt Date: 20070606
  Transmission Date: 20110411
  Serious: Yes (Other)
  Sender: FDA-Public Use
  Company Number: NL-ROCHE-745536

PATIENT

DRUGS (3)
  1. AVASTIN [Suspect]
     Route: 042
  2. XELODA [Suspect]
     Route: 048
  3. OXALIPLATIN [Suspect]
     Route: 042

REACTIONS (1)
  - PALMAR-PLANTAR ERYTHRODYSAESTHESIA SYNDROME [None]
